FAERS Safety Report 7790183-8 (Version None)
Quarter: 2011Q3

REPORT INFORMATION
  Report Type: 
  Country: None (occurrence: None)
  Receive Date: 20110930
  Receipt Date: 20110228
  Transmission Date: 20111222
  Serious: No
  Sender: FDA-Public Use
  Company Number: US-ASTRAZENECA-2007UW23879

PATIENT
  Age: 59 Year
  Sex: Female
  Weight: 64.4 kg

DRUGS (6)
  1. CALCIFER [Concomitant]
  2. ANASTROZOLE [Suspect]
     Indication: BREAST CANCER
     Route: 065
     Dates: start: 20101001, end: 20101101
  3. LEVOXYL [Concomitant]
     Indication: HYPOTHYROIDISM
  4. ARIMIDEX [Suspect]
     Indication: BREAST CANCER FEMALE
     Route: 048
     Dates: start: 20060301, end: 20101101
  5. ARIMIDEX [Suspect]
     Route: 048
     Dates: start: 20101125
  6. VITAMIN D [Concomitant]

REACTIONS (10)
  - JOINT STIFFNESS [None]
  - WEIGHT INCREASED [None]
  - ARTHRALGIA [None]
  - HYPERTRICHOSIS [None]
  - CONSTIPATION [None]
  - PAIN IN EXTREMITY [None]
  - CARPAL TUNNEL SYNDROME [None]
  - OEDEMA PERIPHERAL [None]
  - HYPOTHYROIDISM [None]
  - AGITATION [None]
